FAERS Safety Report 4299212-X (Version None)
Quarter: 2004Q1

REPORT INFORMATION
  Report Type: 
  Country: None (occurrence: None)
  Receive Date: 20040217
  Receipt Date: 20040211
  Transmission Date: 20041129
  Serious: Yes (Death)
  Sender: FDA-Public Use
  Company Number: US-JNJFOC-20040104839

PATIENT
  Age: 71 Year
  Sex: Female

DRUGS (2)
  1. RISPERDAL [Suspect]
     Indication: AGITATION
     Dosage: 1.5 MG , 3 IN 1 DAY, ORAL
     Route: 048
  2. REMINYL [Suspect]
     Indication: DEMENTIA ALZHEIMER'S TYPE

REACTIONS (1)
  - THROAT CANCER [None]
